FAERS Safety Report 17755562 (Version 3)
Quarter: 2020Q4

REPORT INFORMATION
  Report Type: Spontaneous
  Country: US (occurrence: US)
  Receive Date: 20200507
  Receipt Date: 20201126
  Transmission Date: 20210113
  Serious: No
  Sender: FDA-Public Use
  Company Number: US-PFIZER INC-2020181227

PATIENT
  Age: 63 Year
  Sex: Female

DRUGS (1)
  1. XELJANZ XR [Suspect]
     Active Substance: TOFACITINIB CITRATE
     Dosage: 11 MG UNK

REACTIONS (5)
  - Pain [Unknown]
  - Feeling hot [Unknown]
  - Gait disturbance [Unknown]
  - Joint swelling [Unknown]
  - Joint effusion [Unknown]
